FAERS Safety Report 8026629-X (Version None)
Quarter: 2012Q1

REPORT INFORMATION
  Report Type: 
  Country: None (occurrence: None)
  Receive Date: 20120106
  Receipt Date: 20111228
  Transmission Date: 20120608
  Serious: No
  Sender: FDA-Public Use
  Company Number: US-BIOGENIDEC-2011BI048882

PATIENT
  Age: 53 Year
  Sex: Female

DRUGS (1)
  1. TYSABRI [Suspect]
     Indication: MULTIPLE SCLEROSIS
     Route: 042
     Dates: start: 20111202

REACTIONS (5)
  - ASTHENIA [None]
  - ABDOMINAL PAIN UPPER [None]
  - NAUSEA [None]
  - DIZZINESS [None]
  - FATIGUE [None]
